FAERS Safety Report 17204981 (Version 1)
Quarter: 2019Q4

REPORT INFORMATION
  Report Type: Spontaneous
  Country: AU (occurrence: AU)
  Receive Date: 20191227
  Receipt Date: 20191227
  Transmission Date: 20200122
  Serious: Yes (Other)
  Sender: FDA-Public Use
  Company Number: AU-ROCHE-2506024

PATIENT
  Age: 48 Year
  Sex: Male

DRUGS (1)
  1. OMALIZUMAB. [Suspect]
     Active Substance: OMALIZUMAB
     Indication: MAST CELL ACTIVATION SYNDROME
     Dosage: 150 MG,TWO DOSES 1WEEK APART
     Route: 065

REACTIONS (4)
  - Off label use [Unknown]
  - Presyncope [Unknown]
  - Bradycardia [Unknown]
  - Product use in unapproved indication [Unknown]
